FAERS Safety Report 5795734-0 (Version None)
Quarter: 2008Q2

REPORT INFORMATION
  Report Type: 
  Country: None (occurrence: None)
  Receive Date: 20080630
  Receipt Date: 20080626
  Transmission Date: 20081010
  Serious: Yes (Death)
  Sender: FDA-Public Use
  Company Number: NL-BOEHRINGER INGELHEIM GMBH, GERMANY-2008-NL-00379NL

PATIENT
  Sex: Male

DRUGS (2)
  1. SPIRIVA [Suspect]
     Indication: CHRONIC OBSTRUCTIVE PULMONARY DISEASE
     Route: 055
     Dates: start: 20030502, end: 20070123
  2. SERETIDE [Concomitant]
     Dosage: STRENGTH: 500/50MCG

REACTIONS (1)
  - MYOCARDIAL INFARCTION [None]
